FAERS Safety Report 5213701-2 (Version None)
Quarter: 2007Q1

REPORT INFORMATION
  Report Type: 
  Country: None (occurrence: None)
  Receive Date: 20070119
  Receipt Date: 20070108
  Transmission Date: 20070707
  Serious: Yes (Other)
  Sender: FDA-Public Use
  Company Number: US-PFIZER INC-2007003229

PATIENT
  Sex: Female
  Weight: 54.4 kg

DRUGS (4)
  1. CHANTIX [Suspect]
     Dates: start: 20070101, end: 20070107
  2. LEXAPRO [Concomitant]
  3. XANAX [Concomitant]
  4. FIORICET W/ CODEINE [Concomitant]

REACTIONS (6)
  - ARTHRALGIA [None]
  - FOOT FRACTURE [None]
  - OEDEMA PERIPHERAL [None]
  - PARAESTHESIA [None]
  - SWOLLEN TONGUE [None]
  - WEIGHT INCREASED [None]
